FAERS Safety Report 7507327-5 (Version None)
Quarter: 2011Q2

REPORT INFORMATION
  Report Type: 
  Country: None (occurrence: None)
  Receive Date: 20110526
  Receipt Date: 20110524
  Transmission Date: 20111010
  Serious: Yes (Other)
  Sender: FDA-Public Use
  Company Number: FR-PFIZER INC-2011093558

PATIENT
  Age: 54 Year
  Sex: Female

DRUGS (3)
  1. ATARAX [Concomitant]
  2. PRAZEPAM [Concomitant]
  3. VARENICLINE TARTRATE [Suspect]
     Indication: EX-TOBACCO USER
     Dosage: UNK
     Route: 048
     Dates: start: 20100821, end: 20110115

REACTIONS (6)
  - MOOD ALTERED [None]
  - ASTHENIA [None]
  - AGGRESSION [None]
  - TOXICOLOGIC TEST ABNORMAL [None]
  - EMPHYSEMA [None]
  - AGITATION [None]
